FAERS Safety Report 11797389 (Version 1)
Quarter: 2015Q4

REPORT INFORMATION
  Report Type: Spontaneous
  Country: US (occurrence: None)
  Receive Date: 20151202
  Receipt Date: 20151202
  Transmission Date: 20160305
  Serious: Yes (Hospitalization, Other)
  Sender: FDA-Public Use
  Company Number: None

PATIENT
  Age: 65 Year
  Sex: Male
  Weight: 77.5 kg

DRUGS (14)
  1. PEG 3350 [Suspect]
     Active Substance: POLYETHYLENE GLYCOL 3350
     Indication: COLONOSCOPY
     Dosage: 4 LITERS 1/2 PM-1/2 AM TAKEN BY MOUTH
     Route: 048
     Dates: start: 20151124, end: 20151125
  2. SENSIPAR [Concomitant]
     Active Substance: CINACALCET HYDROCHLORIDE
  3. PRAVASTATIN [Concomitant]
     Active Substance: PRAVASTATIN\PRAVASTATIN SODIUM
  4. CLONAZEPAM. [Concomitant]
     Active Substance: CLONAZEPAM
  5. COLACE [Concomitant]
     Active Substance: DOCUSATE SODIUM
  6. PREDNISONE. [Concomitant]
     Active Substance: PREDNISONE
  7. NEPRO [Concomitant]
     Active Substance: DIETARY SUPPLEMENT
  8. HOME HEMODIALYIS MACHINE [Concomitant]
  9. CALCITRIOL. [Concomitant]
     Active Substance: CALCITRIOL
  10. PEG 3350 [Suspect]
     Active Substance: POLYETHYLENE GLYCOL 3350
     Indication: BOWEL PREPARATION
     Dosage: 4 LITERS 1/2 PM-1/2 AM TAKEN BY MOUTH
     Route: 048
     Dates: start: 20151124, end: 20151125
  11. BLOOD PRESSURE MACHINE [Concomitant]
  12. EPOIETIN [Concomitant]
  13. PHOS LO [Concomitant]
  14. HEPARIN [Concomitant]
     Active Substance: HEPARIN SODIUM

REACTIONS (1)
  - Heart rate increased [None]

NARRATIVE: CASE EVENT DATE: 20151125
